FAERS Safety Report 12626230 (Version 1)
Quarter: 2016Q3

REPORT INFORMATION
  Report Type: Spontaneous
  Country: FR (occurrence: FR)
  Receive Date: 20160805
  Receipt Date: 20160805
  Transmission Date: 20161109
  Serious: Yes (Hospitalization)
  Sender: FDA-Public Use
  Company Number: FR-JNJFOC-20160725667

PATIENT
  Age: 22 Year
  Sex: Female

DRUGS (1)
  1. STELARA [Suspect]
     Active Substance: USTEKINUMAB
     Indication: CROHN^S DISEASE
     Route: 058

REACTIONS (6)
  - Dehydration [Unknown]
  - Malaise [Unknown]
  - Off label use [Unknown]
  - Diarrhoea [Unknown]
  - Incorrect product storage [Unknown]
  - Product use issue [Unknown]

NARRATIVE: CASE EVENT DATE: 20160722
